FAERS Safety Report 7212638-7 (Version None)
Quarter: 2011Q1

REPORT INFORMATION
  Report Type: 
  Country: None (occurrence: None)
  Receive Date: 20110106
  Receipt Date: 20110104
  Transmission Date: 20110831
  Serious: No
  Sender: FDA-Public Use
  Company Number: US-PFIZER INC-2011002713

PATIENT
  Sex: Female
  Weight: 52.154 kg

DRUGS (4)
  1. LEVOTHYROXINE [Concomitant]
     Indication: THYROID DISORDER
     Dosage: 50 UG, 1X/DAY
     Route: 048
  2. PRISTIQ [Suspect]
     Indication: DEPRESSION
  3. PRISTIQ [Suspect]
     Indication: ANXIETY
     Dosage: 50 MG, 1X/DAY
     Route: 048
     Dates: start: 20101228
  4. TOPAMAX [Concomitant]
     Indication: MIGRAINE
     Dosage: 25 MG, 2X/DAY
     Route: 048

REACTIONS (3)
  - DRY MOUTH [None]
  - DECREASED APPETITE [None]
  - COMMUNICATION DISORDER [None]
